FAERS Safety Report 4594925-4 (Version None)
Quarter: 2005Q1

REPORT INFORMATION
  Report Type: 
  Country: None (occurrence: None)
  Receive Date: 20050223
  Receipt Date: 20050110
  Transmission Date: 20050727
  Serious: Yes (Disabling, Other)
  Sender: FDA-Public Use
  Company Number: 2004243360DE

PATIENT
  Age: 43 Year
  Sex: Female
  Weight: 68 kg

DRUGS (2)
  1. CELEBREX [Suspect]
     Indication: ANKLE FRACTURE
     Dosage: 400 MG, ORAL
     Route: 048
     Dates: start: 20040907, end: 20040925
  2. ENOXAPARIN SODIUM [Concomitant]

REACTIONS (1)
  - HEPATITIS CHOLESTATIC [None]
